FAERS Safety Report 17724139 (Version 12)
Quarter: 2020Q3

REPORT INFORMATION
  Report Type: Report from Study
  Country: IN (occurrence: IN)
  Receive Date: 20200429
  Receipt Date: 20200720
  Transmission Date: 20201102
  Serious: Yes (Other)
  Sender: FDA-Public Use
  Company Number: NVSC2020IN091169

PATIENT
  Age: 61 Year
  Sex: Male
  Weight: 81 kg

DRUGS (6)
  1. GALVUS MET [Suspect]
     Active Substance: METFORMIN HYDROCHLORIDE\VILDAGLIPTIN
     Indication: DIABETES MELLITUS
     Dosage: 1 DF, QD, (0?0?1) AT NIGHT
     Route: 048
     Dates: start: 2016
  2. CETAPIN [Concomitant]
     Indication: DIABETES MELLITUS
     Dosage: 1 G
     Route: 065
  3. VICTOZA [Concomitant]
     Active Substance: LIRAGLUTIDE
     Indication: DIABETES MELLITUS
     Dosage: INSULIN INJECTION 1.2 OT IN MORNING
     Route: 065
  4. GALVUS MET [Suspect]
     Active Substance: METFORMIN HYDROCHLORIDE\VILDAGLIPTIN
     Dosage: 1 DF, BID (METFORMIN 1000 MG/ VILDAGLIPTIN 50 MG), (1?0?1)
     Route: 048
  5. JARDIANCE [Concomitant]
     Active Substance: EMPAGLIFLOZIN
     Indication: DIABETES MELLITUS
     Dosage: 12.5 OT
     Route: 065
  6. ROVAMYCINE [Concomitant]
     Active Substance: SPIRAMYCIN
     Indication: DIABETES MELLITUS
     Dosage: 60 OT XR IN AFTERNOON
     Route: 065

REACTIONS (17)
  - Inflammation [Unknown]
  - Hunger [Unknown]
  - Weight increased [Unknown]
  - Headache [Unknown]
  - Asthenia [Unknown]
  - Back pain [Not Recovered/Not Resolved]
  - Gastric disorder [Unknown]
  - Blood glucose fluctuation [Not Recovered/Not Resolved]
  - Pain in extremity [Not Recovered/Not Resolved]
  - Swelling [Unknown]
  - Urinary retention [Unknown]
  - Hyperglycaemia [Unknown]
  - Irritability [Unknown]
  - Haemorrhoids [Unknown]
  - Blood cholesterol increased [Unknown]
  - Mobility decreased [Unknown]
  - Scratch [Unknown]

NARRATIVE: CASE EVENT DATE: 20200315
